FAERS Safety Report 10763360 (Version 1)
Quarter: 2015Q1

REPORT INFORMATION
  Report Type: Spontaneous
  Country: SE (occurrence: SE)
  Receive Date: 20150204
  Receipt Date: 20150204
  Transmission Date: 20150721
  Serious: Yes (Other)
  Sender: FDA-Public Use
  Company Number: SE-GLAXOSMITHKLINE INC.-SE2015012854

PATIENT

DRUGS (5)
  1. CITALOPRAM [Concomitant]
     Active Substance: CITALOPRAM HYDROBROMIDE
     Dosage: 20 MG, QD
     Dates: start: 20141126
  2. PROPAVAN [Concomitant]
     Active Substance: PROPIOMAZINE
     Dosage: 1 TABLET BEFORE GOING TO SLEEP.
  3. MIRENA [Suspect]
     Active Substance: LEVONORGESTREL
     Indication: INTRA-UTERINE CONTRACEPTIVE DEVICE
     Dosage: UNK
     Dates: start: 2013
  4. ATARAX [Concomitant]
     Active Substance: HYDROXYZINE\HYDROXYZINE HYDROCHLORIDE
     Dosage: 1-2 TABLETS WHEN NECESSARY. MAXIMUM 6 TABLETS PER DAY.
     Dates: start: 20140702
  5. LAMICTAL [Suspect]
     Active Substance: LAMOTRIGINE
     Indication: BIPOLAR DISORDER
     Dosage: 100 MG, QD
     Dates: start: 20141128

REACTIONS (1)
  - Pregnancy with contraceptive device [Unknown]

NARRATIVE: CASE EVENT DATE: 20141225
